FAERS Safety Report 13361620 (Version 2)
Quarter: 2017Q1

REPORT INFORMATION
  Report Type: Spontaneous
  Country: US (occurrence: US)
  Receive Date: 20170323
  Receipt Date: 20170329
  Transmission Date: 20170429
  Serious: Yes (Hospitalization)
  Sender: FDA-Public Use
  Company Number: US-ASTRAZENECA-2017SE28462

PATIENT
  Age: 63 Year
  Sex: Female
  Weight: 78.9 kg

DRUGS (23)
  1. PROMETHAZINE [Concomitant]
     Active Substance: PROMETHAZINE\PROMETHAZINE HYDROCHLORIDE
     Indication: NAUSEA
     Route: 048
  2. CALCITRIOL. [Concomitant]
     Active Substance: CALCITRIOL
     Route: 048
  3. FEROCON [Concomitant]
     Active Substance: FERROUS FUMARATE\FOLIC ACID\VITAMIN B COMPLEX
     Indication: IRRITABLE BOWEL SYNDROME
     Dosage: EVERY MORNING BEFORE BREAKFAST
     Route: 048
  4. SYMBICORT [Suspect]
     Active Substance: BUDESONIDE\FORMOTEROL FUMARATE DIHYDRATE
     Indication: OXYGEN SUPPLEMENTATION
     Dosage: 160/4.5MCG, 2 PUFFS TWICE A DAY
     Route: 055
     Dates: start: 2008
  5. OMEPRAZOLE. [Suspect]
     Active Substance: OMEPRAZOLE
     Indication: ABDOMINAL PAIN
     Route: 048
  6. OXYGEN. [Concomitant]
     Active Substance: OXYGEN
     Dosage: 3.0L CONTINUOUSLY
  7. LYRICA [Concomitant]
     Active Substance: PREGABALIN
     Indication: ASTHENIA
     Route: 048
  8. PACERONE [Concomitant]
     Active Substance: AMIODARONE HYDROCHLORIDE
     Route: 048
  9. BABY ASPIRIN [Concomitant]
     Active Substance: ASPIRIN
     Route: 048
  10. CLOPIDOGREL BISULFATE. [Concomitant]
     Active Substance: CLOPIDOGREL BISULFATE
     Indication: ARTERIOSCLEROSIS
     Route: 048
  11. VITAMIN D [Concomitant]
     Active Substance: CHOLECALCIFEROL
     Indication: BLOOD DISORDER
     Dosage: BY MOUTH OVER A YEAR AGO
  12. CORTISONE [Concomitant]
     Active Substance: CORTISONE\HYDROCORTISONE
     Indication: BONE DENSITY ABNORMAL
     Dosage: SHOTS EVERY 3 MONTHS IN HER KNEES, SHOTS IN STOMACH EVERY 6 MONTHS
  13. LISINOPRIL. [Suspect]
     Active Substance: LISINOPRIL
     Indication: CARDIAC DISORDER
     Route: 048
  14. FUROSEMIDE. [Concomitant]
     Active Substance: FUROSEMIDE
     Indication: FLUID RETENTION
     Route: 048
  15. ZYRTEC [Concomitant]
     Active Substance: CETIRIZINE HYDROCHLORIDE
     Indication: MULTIPLE ALLERGIES
     Route: 048
  16. OMEPRAZOLE. [Suspect]
     Active Substance: OMEPRAZOLE
     Indication: IRRITABLE BOWEL SYNDROME
     Route: 048
  17. PROVENTIL [Concomitant]
     Active Substance: ALBUTEROL
     Indication: DYSPNOEA
     Dosage: 2 PUFFS AS REQUIRED
     Route: 055
  18. THYROXINE [Concomitant]
     Active Substance: LEVOTHYROXINE
     Indication: THYROID DISORDER
     Route: 048
  19. DULOXETINE. [Concomitant]
     Active Substance: DULOXETINE
     Indication: DEPRESSION
     Route: 048
  20. SYMBICORT [Suspect]
     Active Substance: BUDESONIDE\FORMOTEROL FUMARATE DIHYDRATE
     Indication: OXYGEN SUPPLEMENTATION
     Dosage: 160/4.5MCG, 2 PUFFS ONCE A DAY
     Route: 055
     Dates: start: 2016
  21. SPIRIVA [Concomitant]
     Active Substance: TIOTROPIUM BROMIDE MONOHYDRATE
     Dosage: 1 INHALATION DAILY
     Route: 055
  22. HYDROCODONE [Concomitant]
     Active Substance: HYDROCODONE
     Indication: PAIN
     Dosage: 5/325MG, EVERY 12 HOURS
     Route: 048
     Dates: start: 2008
  23. PRAVASTATIN. [Concomitant]
     Active Substance: PRAVASTATIN
     Indication: BLOOD CHOLESTEROL ABNORMAL
     Route: 048

REACTIONS (20)
  - Nerve injury [Unknown]
  - Chronic obstructive pulmonary disease [Not Recovered/Not Resolved]
  - Dyspnoea [Unknown]
  - Thyroid disorder [Unknown]
  - Device malfunction [Unknown]
  - Oxygen saturation decreased [Unknown]
  - Cataract [Recovered/Resolved]
  - Blood cholesterol abnormal [Unknown]
  - Irritable bowel syndrome [Unknown]
  - Pain [Unknown]
  - Bone density abnormal [Unknown]
  - Depression [Unknown]
  - Cardiac disorder [Unknown]
  - Headache [Unknown]
  - Intentional product misuse [Not Recovered/Not Resolved]
  - Visual acuity reduced [Unknown]
  - Hypersensitivity [Unknown]
  - Nausea [Unknown]
  - Bronchial secretion retention [Unknown]
  - Fluid imbalance [Unknown]

NARRATIVE: CASE EVENT DATE: 2010
